FAERS Safety Report 12812565 (Version 1)
Quarter: 2016Q4

REPORT INFORMATION
  Report Type: Spontaneous
  Country: US (occurrence: US)
  Receive Date: 20161005
  Receipt Date: 20161005
  Transmission Date: 20170207
  Serious: Yes (Other)
  Sender: FDA-Public Use
  Company Number: US-SAOL THERAPEUTICS-2016SAO00688

PATIENT
  Age: 39 Year
  Sex: Female
  Weight: 118.82 kg

DRUGS (22)
  1. BUPIVACAINE. [Suspect]
     Active Substance: BUPIVACAINE
  2. PREVACID [Concomitant]
     Active Substance: LANSOPRAZOLE
     Dosage: 30 MG, UNK
     Dates: start: 20100127
  3. COMPOUNDED BACLOFEN [Suspect]
     Active Substance: BACLOFEN
     Indication: PAIN
     Dosage: 105 ?G, \DAY
     Route: 037
     Dates: start: 20131003
  4. HYDROMORPHONE [Suspect]
     Active Substance: HYDROMORPHONE
     Dosage: 7 MG, \DAY
     Route: 037
     Dates: start: 20160912
  5. RITALIN [Concomitant]
     Active Substance: METHYLPHENIDATE HYDROCHLORIDE
     Dosage: 20 MG, 2X/DAY
     Route: 048
     Dates: start: 20131113, end: 20131213
  6. DILAUDID [Suspect]
     Active Substance: HYDROMORPHONE HYDROCHLORIDE
  7. DIAZEPAM. [Concomitant]
     Active Substance: DIAZEPAM
     Dosage: UNK MG, UNK
     Dates: start: 20100127
  8. COMPOUNDED BACLOFEN [Suspect]
     Active Substance: BACLOFEN
     Indication: SPINAL PAIN
  9. CLONIDINE. [Suspect]
     Active Substance: CLONIDINE
     Dosage: UNK
     Route: 037
     Dates: start: 20131003, end: 20160912
  10. BUPIVACAINE. [Suspect]
     Active Substance: BUPIVACAINE
     Dosage: UNK
     Route: 037
     Dates: start: 20131003
  11. COMPOUNDED BACLOFEN [Suspect]
     Active Substance: BACLOFEN
     Indication: PAIN
     Dosage: UNK UNK, \DAY
     Dates: start: 20160510
  12. ADVAIR HFA [Concomitant]
     Active Substance: FLUTICASONE PROPIONATE\SALMETEROL XINAFOATE
     Dosage: UNKNOWN
     Dates: start: 20100127
  13. AMBIEN [Concomitant]
     Active Substance: ZOLPIDEM TARTRATE
     Dosage: 10 MG, UNK
     Route: 048
     Dates: start: 20100127
  14. DEPAKOTE ER [Concomitant]
     Active Substance: DIVALPROEX SODIUM
     Dosage: 500 MG, UNK
     Route: 048
     Dates: start: 20100127
  15. DHEA (DEHYDROEPIANDROSTERONE) [Concomitant]
     Dosage: UNKNOWN
     Dates: start: 20100127
  16. EFFEXOR [Concomitant]
     Active Substance: VENLAFAXINE HYDROCHLORIDE
     Dosage: 75 MG, 2X/DAY
     Dates: start: 20100127
  17. COMPOUNDED BACLOFEN [Suspect]
     Active Substance: BACLOFEN
     Indication: SPINAL PAIN
     Dosage: UNK
  18. COMPOUNDED BACLOFEN [Suspect]
     Active Substance: BACLOFEN
     Indication: PAIN
     Dosage: 140 ?G, \DAY
     Dates: start: 20160912, end: 20160912
  19. COMPOUNDED BACLOFEN [Suspect]
     Active Substance: BACLOFEN
     Indication: SPINAL PAIN
  20. GRALISE ER [Concomitant]
     Dosage: 600 UNK, 1X/DAY
     Route: 048
     Dates: start: 20140820
  21. OPANA [Concomitant]
     Active Substance: OXYMORPHONE HYDROCHLORIDE
     Dosage: 10 MG, 1X/DAY
     Dates: start: 20141029
  22. BUPIVACAINE. [Suspect]
     Active Substance: BUPIVACAINE

REACTIONS (42)
  - Neck mass [Unknown]
  - Depressed mood [Unknown]
  - Sacroiliitis [Unknown]
  - Epstein-Barr virus infection [Unknown]
  - Hyperhidrosis [Unknown]
  - Oedema peripheral [Unknown]
  - Snoring [Unknown]
  - Neurogenic bladder [Unknown]
  - Hyperaesthesia [Unknown]
  - Anaemia [Recovering/Resolving]
  - Fatigue [Unknown]
  - Nasal congestion [Unknown]
  - Libido decreased [Unknown]
  - Drug ineffective for unapproved indication [Unknown]
  - Smear cervix abnormal [Unknown]
  - Musculoskeletal discomfort [Unknown]
  - Rectocele [Unknown]
  - Abnormal weight gain [Unknown]
  - Cystitis [Unknown]
  - Kyphosis [Unknown]
  - Headache [Unknown]
  - Urinary incontinence [Unknown]
  - Intervertebral disc degeneration [Unknown]
  - Activities of daily living impaired [Unknown]
  - Pyrexia [Unknown]
  - Dysmenorrhoea [Unknown]
  - Wheezing [Unknown]
  - Anxiety [Unknown]
  - Ataxia [Unknown]
  - Thrombosis [Unknown]
  - Fall [Unknown]
  - Somnolence [Unknown]
  - Myelitis transverse [Unknown]
  - Asthenia [Unknown]
  - Spinal osteoarthritis [Unknown]
  - Vaginal haemorrhage [Unknown]
  - Gingival bleeding [Unknown]
  - Vulvovaginal swelling [Unknown]
  - Haematuria [Unknown]
  - Device issue [Unknown]
  - Thirst [Unknown]
  - Swelling [Unknown]

NARRATIVE: CASE EVENT DATE: 20120101
